FAERS Safety Report 24236200 (Version 1)
Quarter: 2024Q3

REPORT INFORMATION
  Report Type: Spontaneous
  Country: ZA (occurrence: None)
  Receive Date: 20240822
  Receipt Date: 20240822
  Transmission Date: 20241016
  Serious: Yes (Other)
  Sender: ASTRAZENECA
  Company Number: 2024A185742

PATIENT
  Age: 79 Year
  Sex: Female

DRUGS (10)
  1. BUDESONIDE\FORMOTEROL [Suspect]
     Active Substance: BUDESONIDE\FORMOTEROL
     Dosage: UNKNOWN UNKNOWN
     Route: 055
  2. SYNALEVE [Concomitant]
  3. ACETAMINOPHEN\TRAMADOL [Concomitant]
     Active Substance: ACETAMINOPHEN\TRAMADOL
  4. UROMAX [Concomitant]
  5. MUPIROCIN [Concomitant]
     Active Substance: MUPIROCIN
  6. ELIDEL [Concomitant]
     Active Substance: PIMECROLIMUS
  7. ESOMEPRAZOLE MAGNESIUM [Concomitant]
     Active Substance: ESOMEPRAZOLE MAGNESIUM
  8. AMLODIPINE BESYLATE [Concomitant]
     Active Substance: AMLODIPINE BESYLATE
  9. DORMONOCT [Concomitant]
     Active Substance: LOPRAZOLAM
  10. ECOTRIN [Concomitant]
     Active Substance: ASPIRIN

REACTIONS (1)
  - Hip fracture [Unknown]
